FAERS Safety Report 25111595 (Version 2)
Quarter: 2025Q2

REPORT INFORMATION
  Report Type: Spontaneous
  Country: US (occurrence: US)
  Receive Date: 20250324
  Receipt Date: 20250409
  Transmission Date: 20250717
  Serious: Yes (Hospitalization, Other)
  Sender: ALEMBIC
  Company Number: US-ALEMBIC PHARMACUETICALS LIMITED-2025SCAL000213

PATIENT

DRUGS (3)
  1. VALSARTAN [Interacting]
     Active Substance: VALSARTAN
     Indication: Hypertension
     Route: 065
  2. HYDROCHLOROTHIAZIDE [Interacting]
     Active Substance: HYDROCHLOROTHIAZIDE
     Indication: Hypertension
     Route: 065
  3. CARVEDILOL [Interacting]
     Active Substance: CARVEDILOL
     Indication: Hypertension
     Route: 065

REACTIONS (13)
  - BRASH syndrome [Recovering/Resolving]
  - Acute kidney injury [Recovering/Resolving]
  - Cardiogenic shock [Recovering/Resolving]
  - Hyperkalaemia [Recovering/Resolving]
  - Blood lactic acid increased [Recovering/Resolving]
  - Nodal arrhythmia [Recovering/Resolving]
  - Blood creatinine increased [Recovering/Resolving]
  - Renal impairment [Recovering/Resolving]
  - Hypotension [Recovering/Resolving]
  - Hypovolaemia [Recovering/Resolving]
  - Multiple drug therapy [Recovering/Resolving]
  - Drug interaction [Recovering/Resolving]
  - Diarrhoea [Recovering/Resolving]
